FAERS Safety Report 17338551 (Version 1)
Quarter: 2020Q1

REPORT INFORMATION
  Report Type: Spontaneous
  Country: US (occurrence: US)
  Receive Date: 20200113
  Receipt Date: 20200113
  Transmission Date: 20200409
  Serious: Yes (Death)
  Sender: FDA-Public Use
  Company Number: None

PATIENT
  Age: 56 Year
  Sex: Female

DRUGS (6)
  1. INLYTA [Suspect]
     Active Substance: AXITINIB
     Indication: BENIGN RENAL NEOPLASM
     Route: 048
     Dates: start: 20191126, end: 20200107
  2. CONTOUR TES NEXT [Concomitant]
  3. FUROSEMIDE. [Concomitant]
     Active Substance: FUROSEMIDE
  4. BD PEN NEEDL MIS [Concomitant]
  5. DEXAMETHASON [Concomitant]
     Active Substance: DEXAMETHASONE
  6. MEMANTINE. [Concomitant]
     Active Substance: MEMANTINE

REACTIONS (1)
  - Death [None]

NARRATIVE: CASE EVENT DATE: 20200107
